FAERS Safety Report 23026368 (Version 1)
Quarter: 2023Q4

REPORT INFORMATION
  Report Type: Spontaneous
  Country: RO (occurrence: RO)
  Receive Date: 20231004
  Receipt Date: 20231004
  Transmission Date: 20240110
  Serious: Yes (Hospitalization, Other)
  Sender: FDA-Public Use
  Company Number: RO-QUAGEN-2023QUALIT00253

PATIENT
  Age: 57 Year
  Sex: Male

DRUGS (1)
  1. CLOBETASOL PROPIONATE [Suspect]
     Active Substance: CLOBETASOL PROPIONATE
     Indication: Psoriasis
     Dosage: WHOLE BODY 3-4 TIMES A WEEK FOR 20 YEARS
     Route: 061

REACTIONS (3)
  - Fracture [Unknown]
  - Hypothalamic pituitary adrenal axis suppression [Unknown]
  - Skin atrophy [Unknown]
